FAERS Safety Report 15640664 (Version 1)
Quarter: 2018Q4

REPORT INFORMATION
  Report Type: Spontaneous
  Country: US (occurrence: US)
  Receive Date: 20181120
  Receipt Date: 20181120
  Transmission Date: 20190205
  Serious: Yes (Other)
  Sender: FDA-Public Use
  Company Number: US-SA-2018SA315986

PATIENT
  Age: 64 Year
  Sex: Male

DRUGS (6)
  1. CRESTOR [Concomitant]
     Active Substance: ROSUVASTATIN CALCIUM
  2. ZETIA [Concomitant]
     Active Substance: EZETIMIBE
  3. COENZYME Q10 [Concomitant]
     Active Substance: UBIDECARENONE
  4. PRALUENT [Suspect]
     Active Substance: ALIROCUMAB
     Dosage: 75 MG, UNK
     Route: 058
  5. GLUCOSAMINE [Concomitant]
     Active Substance: GLUCOSAMINE
  6. BABY ASPIRIN [Concomitant]
     Active Substance: ASPIRIN

REACTIONS (1)
  - Retinal detachment [Unknown]
